FAERS Safety Report 17996596 (Version 6)
Quarter: 2021Q1

REPORT INFORMATION
  Report Type: Report from Study
  Country: AT (occurrence: AT)
  Receive Date: 20200709
  Receipt Date: 20210217
  Transmission Date: 20210419
  Serious: Yes (Hospitalization, Other)
  Sender: FDA-Public Use
  Company Number: AT-BRISTOL-MYERS SQUIBB COMPANY-BMS-2020-052612

PATIENT
  Age: 83 Year
  Sex: Male
  Weight: 59 kg

DRUGS (20)
  1. PANTOPRAZOL [PANTOPRAZOLE] [Concomitant]
     Active Substance: PANTOPRAZOLE
     Indication: PROPHYLAXIS
     Dosage: 40 MILLIGRAM
     Route: 048
     Dates: start: 20190820
  2. XALATAN [Concomitant]
     Active Substance: LATANOPROST
     Indication: PROPHYLAXIS
     Dosage: 1 DOSAGE FORM
     Route: 001
     Dates: start: 2017
  3. KCL [Concomitant]
     Active Substance: POTASSIUM CHLORIDE
     Indication: PRODUCT USED FOR UNKNOWN INDICATION
     Dosage: UNK
     Route: 065
  4. PARACETAMOL [Concomitant]
     Active Substance: ACETAMINOPHEN
     Indication: ARTHRALGIA
     Dosage: 500 MILLIGRAM
     Route: 048
     Dates: start: 20200325
  5. NOVALGIN [CAFFEINE;PARACETAMOL;PROPYPHENAZONE] [Concomitant]
     Active Substance: ACETAMINOPHEN\CAFFEINE\PROPYPHENAZONE
     Indication: PRODUCT USED FOR UNKNOWN INDICATION
     Dosage: 1 DOSAGE FORM
     Route: 048
     Dates: start: 20200501
  6. EFFORTIL [Concomitant]
     Active Substance: ETILEFRINE HYDROCHLORIDE
     Indication: VERTIGO
     Dosage: 1 DOSAGE FORM
     Route: 048
     Dates: start: 20200603, end: 20201001
  7. DALTEPARIN [Concomitant]
     Active Substance: DALTEPARIN
     Indication: PROPHYLAXIS
     Dosage: 1 DOSAGE FORM
     Route: 058
     Dates: start: 20190819
  8. OTHER ANTIPRURITICS [Concomitant]
     Indication: PRODUCT USED FOR UNKNOWN INDICATION
     Dosage: UNK
     Route: 065
  9. AMLODIPINE [Concomitant]
     Active Substance: AMLODIPINE BESYLATE
     Indication: PRODUCT USED FOR UNKNOWN INDICATION
     Dosage: 5 MILLIGRAM
     Route: 048
     Dates: start: 20190822
  10. TRIAZOLAM. [Concomitant]
     Active Substance: TRIAZOLAM
     Indication: PRODUCT USED FOR UNKNOWN INDICATION
     Dosage: 0.25 MILLIGRAM
     Route: 048
     Dates: start: 20190820
  11. DIPROGENTA [Concomitant]
     Active Substance: BETAMETHASONE DIPROPIONATE\GENTAMICIN SULFATE
     Indication: PRODUCT USED FOR UNKNOWN INDICATION
     Dosage: UNK
     Route: 061
     Dates: start: 20200701, end: 20200709
  12. PANTOLOC [PANTOPRAZOLE] [Concomitant]
     Active Substance: PANTOPRAZOLE SODIUM
     Indication: PRODUCT USED FOR UNKNOWN INDICATION
     Dosage: UNK
     Route: 065
  13. ELOMEL [Concomitant]
     Indication: PRODUCT USED FOR UNKNOWN INDICATION
     Dosage: UNK
     Route: 065
  14. TEMESTA [LORAZEPAM] [Concomitant]
     Active Substance: LORAZEPAM
     Indication: PRODUCT USED FOR UNKNOWN INDICATION
     Dosage: UNK
     Route: 065
  15. PLACEBO [Suspect]
     Active Substance: UNSPECIFIED INGREDIENT
     Indication: RENAL CELL CARCINOMA
     Dosage: 100 MILLILITER
     Route: 042
     Dates: start: 20190918
  16. MIDAZOLAM. [Concomitant]
     Active Substance: MIDAZOLAM
     Indication: PRODUCT USED FOR UNKNOWN INDICATION
     Dosage: UNK
     Route: 065
  17. SIMETICON [Concomitant]
     Indication: PRODUCT USED FOR UNKNOWN INDICATION
     Dosage: 252 MILLIGRAM
     Route: 048
     Dates: start: 20190820
  18. NIVOLUMAB [Suspect]
     Active Substance: NIVOLUMAB
     Indication: RENAL CELL CARCINOMA
     Dosage: 100 MILLILITER
     Route: 042
     Dates: start: 20190918
  19. LEVOTHYROXIN [Concomitant]
     Active Substance: LEVOTHYROXINE
     Indication: PRODUCT USED FOR UNKNOWN INDICATION
     Dosage: 75 MICROGRAM
     Route: 048
     Dates: start: 1991, end: 20201001
  20. TIMOPTIC [Concomitant]
     Active Substance: TIMOLOL MALEATE
     Indication: PROPHYLAXIS
     Dosage: 1 DOSAGE FORM
     Route: 001
     Dates: start: 2017

REACTIONS (1)
  - Immune-mediated cholangitis [Recovered/Resolved]

NARRATIVE: CASE EVENT DATE: 20200701
